FAERS Safety Report 6609349-5 (Version None)
Quarter: 2010Q1

REPORT INFORMATION
  Report Type: 
  Country: None (occurrence: None)
  Receive Date: 20100302
  Receipt Date: 20100223
  Transmission Date: 20100710
  Serious: Yes (Death)
  Sender: FDA-Public Use
  Company Number: US-BIOGENIDEC-2009BI000311

PATIENT
  Age: 66 Year
  Sex: Male

DRUGS (2)
  1. AVONEX [Suspect]
     Indication: MULTIPLE SCLEROSIS
     Route: 030
     Dates: start: 20030401
  2. AVONEX [Suspect]
     Route: 030
     Dates: start: 20070201

REACTIONS (2)
  - FALL [None]
  - SEPSIS [None]
